FAERS Safety Report 4290494-7 (Version None)
Quarter: 2004Q1

REPORT INFORMATION
  Report Type: 
  Country: None (occurrence: None)
  Receive Date: 20040209
  Receipt Date: 20040127
  Transmission Date: 20041129
  Serious: Yes (Hospitalization)
  Sender: FDA-Public Use
  Company Number: 20041967831T

PATIENT
  Age: 59 Year
  Sex: Male

DRUGS (3)
  1. DEPO-MEDROL [Suspect]
     Indication: PERIARTHRITIS
     Dosage: SINGLE, INTRA-ARTICULAR
     Route: 014
  2. ATENOLOL [Concomitant]
  3. EUTIROX (LEVOTHYROXINE) [Concomitant]

REACTIONS (2)
  - ANGIONEUROTIC OEDEMA [None]
  - LARYNGEAL OEDEMA [None]
